FAERS Safety Report 5649848-6 (Version None)
Quarter: 2008Q1

REPORT INFORMATION
  Report Type: 
  Country: None (occurrence: None)
  Receive Date: 20080304
  Receipt Date: 20080221
  Transmission Date: 20080703
  Serious: Yes (Hospitalization)
  Sender: FDA-Public Use
  Company Number: BR-PFIZER INC-2008018109

PATIENT
  Sex: Male

DRUGS (8)
  1. GLIPIZIDE [Suspect]
     Indication: TYPE 2 DIABETES MELLITUS
     Route: 048
  2. GLIPIZIDE [Suspect]
     Indication: CARDIOVASCULAR DISORDER
  3. CLOPIDOGREL [Concomitant]
     Dates: start: 20060825, end: 20060825
  4. ASPIRIN [Concomitant]
     Dates: start: 20060701
  5. SIMVASTATIN [Concomitant]
     Dates: start: 20060701
  6. ATENOLOL [Concomitant]
     Dates: start: 20060825
  7. ENALAPRIL MALEATE [Concomitant]
     Dates: start: 20060701
  8. OMEPRAZOLE [Concomitant]
     Dates: start: 20060701

REACTIONS (1)
  - PERCUTANEOUS CORONARY INTERVENTION [None]
